FAERS Safety Report 9127160 (Version 1)
Quarter: 2013Q1

REPORT INFORMATION
  Report Type: Spontaneous
  Country: US (occurrence: US)
  Receive Date: 20130228
  Receipt Date: 20130228
  Transmission Date: 20140127
  Serious: No
  Sender: FDA-Public Use
  Company Number: US-GLAXOSMITHKLINE-A0848690A

PATIENT
  Age: 18 Year
  Sex: Female
  Weight: 75.5 kg

DRUGS (3)
  1. LAMICTAL [Suspect]
     Indication: EPILEPSY
     Dosage: 150MG TWICE PER DAY
     Route: 048
  2. FOLIC ACID [Concomitant]
  3. PRENATAL VITAMINS [Concomitant]

REACTIONS (2)
  - Exposure during pregnancy [Unknown]
  - Live birth [Unknown]
